FAERS Safety Report 8599084-9 (Version None)
Quarter: 2012Q3

REPORT INFORMATION
  Report Type: 
  Country: None (occurrence: None)
  Receive Date: 20120806
  Receipt Date: 20120806
  Transmission Date: 20120928
  Serious: Yes (Hospitalization)
  Sender: FDA-Public Use
  Company Number: None

PATIENT
  Sex: Male
  Weight: 75.4 kg

DRUGS (4)
  1. VECTIBEX AMGEN [Suspect]
     Indication: OESOPHAGEAL CARCINOMA
     Dosage: 6 MG/KG EVERY OTHER WEEK IV DRIP
     Route: 041
     Dates: start: 20120327, end: 20120508
  2. OXALIPLATIN [Suspect]
     Indication: OESOPHAGEAL CARCINOMA
     Dosage: 85MG/M2 EVERY OTHER WEEK IV DRIP
     Route: 041
     Dates: start: 20120327, end: 20120515
  3. LEUCOVORIN CALCIUM [Concomitant]
  4. FLUOROURACIL [Concomitant]

REACTIONS (4)
  - HYPOPHAGIA [None]
  - AGEUSIA [None]
  - ODYNOPHAGIA [None]
  - HYPERNATRAEMIA [None]
